FAERS Safety Report 5420524-8 (Version None)
Quarter: 2007Q3

REPORT INFORMATION
  Report Type: 
  Country: None (occurrence: None)
  Receive Date: 20070821
  Receipt Date: 20060720
  Transmission Date: 20080115
  Serious: No
  Sender: FDA-Public Use
  Company Number: US-KINGPHARMUSA00001-K200600923

PATIENT

DRUGS (4)
  1. CYTOMEL [Suspect]
     Dosage: 50 MCG IN AM, 25 MCG IN PM
     Dates: start: 20060711
  2. ZETIA [Concomitant]
     Indication: BLOOD CHOLESTEROL INCREASED
  3. VITAMIN B NOS [Concomitant]
  4. ACTIVELLA [Concomitant]
     Indication: HORMONE REPLACEMENT THERAPY

REACTIONS (1)
  - FATIGUE [None]
